FAERS Safety Report 8104044-8 (Version None)
Quarter: 2012Q1

REPORT INFORMATION
  Report Type: 
  Country: None (occurrence: None)
  Receive Date: 20120201
  Receipt Date: 20120127
  Transmission Date: 20120608
  Serious: No
  Sender: FDA-Public Use
  Company Number: US-PFIZER INC-2012023626

PATIENT
  Sex: Female
  Weight: 47.619 kg

DRUGS (5)
  1. CHANTIX [Suspect]
     Indication: SMOKING CESSATION THERAPY
     Dosage: 0.5 MG, 1X/DAY
     Route: 048
     Dates: start: 20120125
  2. CHANTIX [Suspect]
     Dosage: 0.5 MG, UNK
     Route: 048
     Dates: start: 20120127
  3. ZMAX [Concomitant]
     Indication: BRONCHITIS
     Dosage: UNK
  4. CHANTIX [Suspect]
     Dosage: 0.5 MG, 2X/DAY
     Route: 048
     Dates: start: 20120126
  5. PREDNISONE [Concomitant]
     Indication: BRONCHITIS
     Dosage: UNK

REACTIONS (1)
  - NAUSEA [None]
